FAERS Safety Report 11577130 (Version 1)
Quarter: 2015Q3

REPORT INFORMATION
  Report Type: Report from Study
  Country: BR (occurrence: BR)
  Receive Date: 20150930
  Receipt Date: 20150930
  Transmission Date: 20151125
  Serious: Yes (Other)
  Sender: FDA-Public Use
  Company Number: BR-ABBVIE-15K-020-1470108-00

PATIENT
  Sex: Female
  Weight: 65 kg

DRUGS (1)
  1. HUMIRA [Suspect]
     Active Substance: ADALIMUMAB
     Indication: RHEUMATOID ARTHRITIS
     Route: 058

REACTIONS (5)
  - Burning sensation [Not Recovered/Not Resolved]
  - Foot deformity [Not Recovered/Not Resolved]
  - Acne cystic [Not Recovered/Not Resolved]
  - Mass [Not Recovered/Not Resolved]
  - Pain [Unknown]
